FAERS Safety Report 18808687 (Version 16)
Quarter: 2021Q4

REPORT INFORMATION
  Report Type: Spontaneous
  Country: GB (occurrence: GB)
  Receive Date: 20210129
  Receipt Date: 20211227
  Transmission Date: 20220303
  Serious: Yes (Hospitalization, Other)
  Sender: FDA-Public Use
  Company Number: GB-MYLANLABS-2019M1117808

PATIENT
  Age: 59 Year
  Sex: Male

DRUGS (86)
  1. ARIPIPRAZOLE [Suspect]
     Active Substance: ARIPIPRAZOLE
     Indication: Schizophrenia
     Route: 065
  2. ARIPIPRAZOLE [Suspect]
     Active Substance: ARIPIPRAZOLE
     Indication: Schizophrenia
     Route: 065
  3. ARIPIPRAZOLE [Suspect]
     Active Substance: ARIPIPRAZOLE
     Route: 065
  4. ARIPIPRAZOLE [Suspect]
     Active Substance: ARIPIPRAZOLE
     Route: 065
  5. CHLORPROMAZINE [Suspect]
     Active Substance: CHLORPROMAZINE
     Indication: Schizophrenia
     Route: 065
  6. CHLORPROMAZINE [Suspect]
     Active Substance: CHLORPROMAZINE
     Indication: Schizophrenia
  7. OLANZAPINE [Suspect]
     Active Substance: OLANZAPINE
     Indication: Schizophrenia
     Route: 065
     Dates: start: 20060704
  8. OLANZAPINE [Suspect]
     Active Substance: OLANZAPINE
  9. OLANZAPINE [Suspect]
     Active Substance: OLANZAPINE
     Route: 065
     Dates: start: 20040217
  10. OLANZAPINE [Suspect]
     Active Substance: OLANZAPINE
     Route: 065
     Dates: start: 20080823
  11. OLANZAPINE [Suspect]
     Active Substance: OLANZAPINE
     Route: 048
  12. OLANZAPINE [Suspect]
     Active Substance: OLANZAPINE
     Route: 065
  13. OLANZAPINE [Suspect]
     Active Substance: OLANZAPINE
     Route: 065
  14. OLANZAPINE [Suspect]
     Active Substance: OLANZAPINE
     Route: 065
  15. ZUCLOPENTHIXOL [Suspect]
     Active Substance: ZUCLOPENTHIXOL
     Indication: Product used for unknown indication
     Dosage: BIWEEKLY
     Route: 065
     Dates: start: 20030204, end: 20040217
  16. ZUCLOPENTHIXOL [Suspect]
     Active Substance: ZUCLOPENTHIXOL
     Route: 030
  17. ZUCLOPENTHIXOL [Suspect]
     Active Substance: ZUCLOPENTHIXOL
     Dosage: BIWEEKLY
     Dates: start: 20040601, end: 20041018
  18. ZUCLOPENTHIXOL [Suspect]
     Active Substance: ZUCLOPENTHIXOL
     Route: 065
     Dates: start: 20040217, end: 20040601
  19. ZUCLOPENTHIXOL [Suspect]
     Active Substance: ZUCLOPENTHIXOL
     Route: 030
     Dates: start: 20091009
  20. ZUCLOPENTHIXOL [Suspect]
     Active Substance: ZUCLOPENTHIXOL
     Dosage: 400 MG, OTHER (BIWEEKLY)
     Route: 030
     Dates: start: 20041018, end: 20041018
  21. ZUCLOPENTHIXOL [Suspect]
     Active Substance: ZUCLOPENTHIXOL
     Route: 030
     Dates: start: 20091009
  22. ZUCLOPENTHIXOL [Suspect]
     Active Substance: ZUCLOPENTHIXOL
     Route: 030
     Dates: start: 20091009
  23. ZUCLOPENTHIXOL [Suspect]
     Active Substance: ZUCLOPENTHIXOL
     Route: 030
     Dates: start: 20091018
  24. ZUCLOPENTHIXOL [Suspect]
     Active Substance: ZUCLOPENTHIXOL
  25. ZUCLOPENTHIXOL [Suspect]
     Active Substance: ZUCLOPENTHIXOL
     Dosage: 400 MG, BIWEEKLY
     Route: 065
  26. ZUCLOPENTHIXOL [Suspect]
     Active Substance: ZUCLOPENTHIXOL
     Dosage: 400 MILLIGRAM, EVERY WEEK
     Route: 065
  27. ZUCLOPENTHIXOL [Suspect]
     Active Substance: ZUCLOPENTHIXOL
     Route: 065
  28. CLOZARIL [Suspect]
     Active Substance: CLOZAPINE
     Indication: Schizophrenia
     Dosage: AM OFF LABEL USE
     Route: 048
  29. CLOZARIL [Suspect]
     Active Substance: CLOZAPINE
     Dosage: MIDDAY OFF LABEL USE
     Route: 048
  30. CLOZARIL [Suspect]
     Active Substance: CLOZAPINE
     Dosage: PM
  31. CLOZARIL [Suspect]
     Active Substance: CLOZAPINE
     Route: 048
     Dates: start: 20191209, end: 20191223
  32. CLOZARIL [Suspect]
     Active Substance: CLOZAPINE
     Dosage: OFF LABEL USE
     Route: 048
     Dates: start: 20200521, end: 2021
  33. CLOZARIL [Suspect]
     Active Substance: CLOZAPINE
  34. CLOZARIL [Suspect]
     Active Substance: CLOZAPINE
     Dosage: UNK
     Route: 048
     Dates: start: 20201207
  35. CLOZARIL [Suspect]
     Active Substance: CLOZAPINE
     Route: 048
     Dates: start: 2011
  36. CLOZARIL [Suspect]
     Active Substance: CLOZAPINE
     Dosage: UNK OFF LABEL USE
     Route: 048
     Dates: start: 20100823
  37. CLOZARIL [Suspect]
     Active Substance: CLOZAPINE
     Dosage: PM OFF LABEL USE
  38. CLOZARIL [Suspect]
     Active Substance: CLOZAPINE
     Dosage: 200 MILLIGRAM, BID
     Route: 048
     Dates: start: 20191209, end: 20191223
  39. CLOZARIL [Suspect]
     Active Substance: CLOZAPINE
     Route: 048
     Dates: start: 20191223, end: 20191223
  40. CLOZARIL [Suspect]
     Active Substance: CLOZAPINE
     Route: 048
     Dates: start: 2011
  41. CLOZARIL [Suspect]
     Active Substance: CLOZAPINE
     Dosage: PM OFF LABEL USE
     Route: 048
     Dates: start: 20200521, end: 2020
  42. CLOZARIL [Suspect]
     Active Substance: CLOZAPINE
     Route: 048
     Dates: start: 20191209, end: 20191223
  43. CLOZARIL [Suspect]
     Active Substance: CLOZAPINE
     Dosage: OFF LABEL USE
     Route: 048
     Dates: start: 20191209, end: 20191223
  44. CLOZARIL [Suspect]
     Active Substance: CLOZAPINE
     Dosage: 200 MILLIGRAM, BID OFF LABEL USE
     Route: 048
  45. CLOZARIL [Suspect]
     Active Substance: CLOZAPINE
     Route: 048
  46. CLOZARIL [Suspect]
     Active Substance: CLOZAPINE
     Dosage: UNK OFF LABEL USE
     Route: 048
     Dates: start: 20100823
  47. CLOZARIL [Suspect]
     Active Substance: CLOZAPINE
     Dosage: UNK UNK, AM OFF LABEL USE
     Dates: start: 2011
  48. CLOZARIL [Suspect]
     Active Substance: CLOZAPINE
     Route: 048
     Dates: start: 20191209, end: 20191223
  49. CLOZARIL [Suspect]
     Active Substance: CLOZAPINE
     Route: 048
  50. CLOZARIL [Suspect]
     Active Substance: CLOZAPINE
     Route: 048
     Dates: start: 20100823, end: 20100823
  51. CLOZARIL [Suspect]
     Active Substance: CLOZAPINE
     Dosage: 200 MILLIGRAM TWO TIMES A DAY
     Route: 048
  52. CLOZARIL [Suspect]
     Active Substance: CLOZAPINE
     Dosage: 200 MILLIGRAM TWO TIMES A DAY
  53. CLOZARIL [Suspect]
     Active Substance: CLOZAPINE
     Dates: start: 20201207
  54. CLOZARIL [Suspect]
     Active Substance: CLOZAPINE
     Route: 048
  55. CLOZARIL [Suspect]
     Active Substance: CLOZAPINE
     Route: 048
  56. CLOZARIL [Suspect]
     Active Substance: CLOZAPINE
     Route: 065
     Dates: start: 20200521
  57. HALOPERIDOL [Suspect]
     Active Substance: HALOPERIDOL
     Indication: Schizophrenia
     Route: 048
  58. HALOPERIDOL [Suspect]
     Active Substance: HALOPERIDOL
  59. HALOPERIDOL [Suspect]
     Active Substance: HALOPERIDOL
     Dosage: 10 MG, 2 PER DAY
     Route: 048
  60. HALOPERIDOL [Suspect]
     Active Substance: HALOPERIDOL
     Route: 048
  61. HALOPERIDOL [Suspect]
     Active Substance: HALOPERIDOL
     Dosage: 20 MG, BID
     Route: 048
  62. HALOPERIDOL [Suspect]
     Active Substance: HALOPERIDOL
     Route: 048
  63. HALOPERIDOL [Suspect]
     Active Substance: HALOPERIDOL
  64. HALOPERIDOL [Suspect]
     Active Substance: HALOPERIDOL
     Dosage: 20 MILLIGRAM, TWO TIMES A DAY
     Route: 048
  65. HALOPERIDOL [Suspect]
     Active Substance: HALOPERIDOL
     Route: 048
  66. HALOPERIDOL [Suspect]
     Active Substance: HALOPERIDOL
     Dosage: 20 MILLIGRAM, BID
     Route: 048
  67. LITHIUM [Suspect]
     Active Substance: LITHIUM
     Indication: Product used for unknown indication
     Route: 048
  68. LITHIUM [Suspect]
     Active Substance: LITHIUM
     Indication: Schizophrenia
     Dosage: 1 GRAM
     Route: 065
  69. LITHIUM [Suspect]
     Active Substance: LITHIUM
     Route: 048
  70. LITHIUM [Suspect]
     Active Substance: LITHIUM
     Route: 065
  71. LITHIUM [Suspect]
     Active Substance: LITHIUM
     Route: 065
  72. LITHIUM [Suspect]
     Active Substance: LITHIUM
     Route: 048
  73. LORAZEPAM [Suspect]
     Active Substance: LORAZEPAM
     Indication: Schizophrenia
     Route: 048
  74. LORAZEPAM [Suspect]
     Active Substance: LORAZEPAM
  75. RISPERDAL [Suspect]
     Active Substance: RISPERIDONE
     Indication: Schizophrenia
     Route: 065
  76. RISPERDAL [Suspect]
     Active Substance: RISPERIDONE
     Route: 048
  77. RISPERDAL [Suspect]
     Active Substance: RISPERIDONE
  78. RISPERDAL [Suspect]
     Active Substance: RISPERIDONE
     Dosage: 6 MILLIGRAM, QD (3 MG, 2X/DAY)
     Route: 048
  79. RISPERDAL [Suspect]
     Active Substance: RISPERIDONE
     Dosage: 4 MILLIGRAM, QD (2 MG, 2X/DAY)
  80. RISPERDAL [Suspect]
     Active Substance: RISPERIDONE
     Route: 065
  81. RISPERDAL [Suspect]
     Active Substance: RISPERIDONE
     Dosage: 2 MG, 2 PER DAY
  82. RISPERDAL [Suspect]
     Active Substance: RISPERIDONE
     Dosage: BID
     Route: 048
  83. RISPERDAL [Suspect]
     Active Substance: RISPERIDONE
     Dosage: BID
  84. RISPERDAL [Suspect]
     Active Substance: RISPERIDONE
     Dosage: 3 MILLIGRAM, BID
     Route: 065
  85. RISPERDAL [Suspect]
     Active Substance: RISPERIDONE
     Route: 065
  86. RISPERDAL [Suspect]
     Active Substance: RISPERIDONE
     Dosage: 6 MILLIGRAM, ONCE A DAY (6 MG, QD)
     Route: 048

REACTIONS (16)
  - Delusion of grandeur [Unknown]
  - Hallucination, auditory [Unknown]
  - Psychotic disorder [Recovered/Resolved]
  - Neutrophil count increased [Unknown]
  - Hospitalisation [Unknown]
  - Fatigue [Unknown]
  - Schizophrenia [Not Recovered/Not Resolved]
  - Neutropenia [Recovered/Resolved]
  - Leukopenia [Recovered/Resolved with Sequelae]
  - Affective disorder [Recovered/Resolved]
  - Platelet count decreased [Recovered/Resolved]
  - Extrapyramidal disorder [Unknown]
  - Lymphocyte count decreased [Unknown]
  - Off label use [Unknown]
  - Incorrect dose administered [Unknown]
  - Off label use [Unknown]

NARRATIVE: CASE EVENT DATE: 20190101
